FAERS Safety Report 7587102-6 (Version None)
Quarter: 2011Q3

REPORT INFORMATION
  Report Type: 
  Country: None (occurrence: None)
  Receive Date: 20110701
  Receipt Date: 20110628
  Transmission Date: 20111222
  Serious: Yes (Death)
  Sender: FDA-Public Use
  Company Number: PHHY2011US33895

PATIENT
  Sex: Male

DRUGS (5)
  1. LISINOPRIL [Concomitant]
  2. METOPROLOL TARTRATE [Concomitant]
  3. ASPIRIN [Concomitant]
  4. CARBIDOPA + LEVODOPA [Concomitant]
  5. EXELON [Suspect]
     Dosage: 9.5 MG, DAILY
     Route: 062

REACTIONS (6)
  - DYSPHAGIA [None]
  - APHAGIA [None]
  - PNEUMONIA [None]
  - ASPIRATION [None]
  - RESPIRATORY FAILURE [None]
  - PARKINSON'S DISEASE [None]
